FAERS Safety Report 4640600-7 (Version None)
Quarter: 2005Q2

REPORT INFORMATION
  Report Type: 
  Country: None (occurrence: None)
  Receive Date: 20050419
  Receipt Date: 20050406
  Transmission Date: 20051028
  Serious: Yes (Hospitalization)
  Sender: FDA-Public Use
  Company Number: 2005054701

PATIENT
  Age: 51 Year
  Sex: Female
  Weight: 68 kg

DRUGS (2)
  1. MINOXIDIL [Suspect]
     Indication: ALOPECIA
     Dosage: 5% UNSPECIFIED AMOUNT QD, TOPICAL
     Route: 061
     Dates: start: 20030101, end: 20050303
  2. LEVOTHYROXINE SODIUM (LEVOTHYROSCINE SODIUM) [Concomitant]

REACTIONS (1)
  - VENTRICULAR TACHYCARDIA [None]
